FAERS Safety Report 10461162 (Version 1)
Quarter: 2014Q3

REPORT INFORMATION
  Report Type: Spontaneous
  Country: DE (occurrence: DE)
  Receive Date: 20140918
  Receipt Date: 20140918
  Transmission Date: 20150326
  Serious: Yes (Life-Threatening, Other)
  Sender: FDA-Public Use
  Company Number: DE-RANBAXY-2014RR-85389

PATIENT
  Age: 50 Year
  Sex: Female
  Weight: 76 kg

DRUGS (1)
  1. CEFUROX BASICS 500 MG TABLETTEN [Suspect]
     Active Substance: CEFUROXIME
     Indication: INFECTED BITES
     Dosage: 1 TABLET
     Route: 065

REACTIONS (2)
  - Anaphylactic shock [Unknown]
  - Coma [Unknown]
